FAERS Safety Report 24456132 (Version 2)
Quarter: 2024Q4

REPORT INFORMATION
  Report Type: Spontaneous
  Country: DE (occurrence: DE)
  Receive Date: 20241017
  Receipt Date: 20241018
  Transmission Date: 20250115
  Serious: No
  Sender: ROCHE
  Company Number: DE-ROCHE-3495369

PATIENT
  Sex: Female

DRUGS (2)
  1. MABTHERA [Suspect]
     Active Substance: RITUXIMAB
     Indication: Vasculitis
     Route: 065
  2. TOCILIZUMAB [Suspect]
     Active Substance: TOCILIZUMAB
     Indication: Vasculitis
     Dosage: WEEKLY DOSE FOR 4 WEEKS AND THEN EVERY SIX MONTHS.
     Route: 065

REACTIONS (3)
  - Off label use [Unknown]
  - Off label use [Unknown]
  - Scleritis [Unknown]
